FAERS Safety Report 15375294 (Version 1)
Quarter: 2018Q3

REPORT INFORMATION
  Report Type: Spontaneous
  Country: US (occurrence: US)
  Receive Date: 20180912
  Receipt Date: 20180912
  Transmission Date: 20181010
  Serious: No
  Sender: FDA-Public Use
  Company Number: US-SHIRE-US201834697

PATIENT
  Sex: Female

DRUGS (1)
  1. GATTEX [Suspect]
     Active Substance: TEDUGLUTIDE\WATER
     Indication: SHORT-BOWEL SYNDROME
     Dosage: 0.33 UNK, UNK
     Route: 065
     Dates: start: 20170623

REACTIONS (2)
  - Inappropriate schedule of drug administration [Recovered/Resolved]
  - Lipase increased [Unknown]
